FAERS Safety Report 8287523-2 (Version None)
Quarter: 2012Q2

REPORT INFORMATION
  Report Type: 
  Country: None (occurrence: None)
  Receive Date: 20120416
  Receipt Date: 20120404
  Transmission Date: 20120825
  Serious: Yes (Hospitalization, Other)
  Sender: FDA-Public Use
  Company Number: CA-ROCHE-1057132

PATIENT
  Age: 71 Year
  Sex: Female
  Weight: 56 kg

DRUGS (3)
  1. HERCEPTIN [Suspect]
     Indication: PRODUCT USED FOR UNKNOWN INDICATION
     Dosage: POWDER FOR SOLUTION
     Route: 042
  2. HERCEPTIN [Suspect]
     Route: 065
  3. ARIMIDEX [Concomitant]
     Route: 048

REACTIONS (3)
  - LUNG DISORDER [None]
  - LUNG INFILTRATION [None]
  - RESTRICTIVE PULMONARY DISEASE [None]
